FAERS Safety Report 7327523-X (Version None)
Quarter: 2011Q1

REPORT INFORMATION
  Report Type: 
  Country: None (occurrence: None)
  Receive Date: 20110303
  Receipt Date: 20110222
  Transmission Date: 20110831
  Serious: No
  Sender: FDA-Public Use
  Company Number: US-BIOGENIDEC-2011BI006811

PATIENT
  Sex: Female

DRUGS (1)
  1. TYSABRI [Suspect]
     Indication: MULTIPLE SCLEROSIS
     Route: 042
     Dates: start: 20071004, end: 20101015

REACTIONS (13)
  - BALANCE DISORDER [None]
  - NUCLEAR MAGNETIC RESONANCE IMAGING ABNORMAL [None]
  - FATIGUE [None]
  - ASTHENIA [None]
  - DIPLOPIA [None]
  - DYSARTHRIA [None]
  - VIITH NERVE PARALYSIS [None]
  - MOBILITY DECREASED [None]
  - VERTIGO [None]
  - PARAESTHESIA [None]
  - TREMOR [None]
  - MUSCLE SPASMS [None]
  - MULTIPLE SCLEROSIS [None]
